FAERS Safety Report 26128570 (Version 3)
Quarter: 2025Q4

REPORT INFORMATION
  Report Type: Spontaneous
  Country: JP (occurrence: JP)
  Receive Date: 20251207
  Receipt Date: 20251228
  Transmission Date: 20260117
  Serious: Yes (Other)
  Sender: AMGEN
  Company Number: JP-KYOWAKIRIN-2025KK022869

PATIENT
  Age: 5 Decade
  Sex: Female

DRUGS (3)
  1. PEGFILGRASTIM [Suspect]
     Active Substance: PEGFILGRASTIM
     Indication: Colony stimulating factor therapy
     Dosage: UNK
     Route: 058
     Dates: start: 20251107, end: 20251107
  2. EPIRUBICIN HYDROCHLORIDE [Concomitant]
     Active Substance: EPIRUBICIN HYDROCHLORIDE
     Indication: Breast cancer
     Dosage: UNK, THE 4TH COURSE
     Route: 065
  3. CYCLOPHOSPHAMIDE [Concomitant]
     Active Substance: CYCLOPHOSPHAMIDE
     Indication: Breast cancer
     Dosage: UNK, THE 4TH COURSE
     Route: 065

REACTIONS (2)
  - Neutropenia [Unknown]
  - Underdose [Unknown]

NARRATIVE: CASE EVENT DATE: 20251107
